FAERS Safety Report 6166526-8 (Version None)
Quarter: 2009Q2

REPORT INFORMATION
  Report Type: 
  Country: None (occurrence: None)
  Receive Date: 20090422
  Receipt Date: 20090422
  Transmission Date: 20091009
  Serious: No
  Sender: FDA-Public Use
  Company Number: None

PATIENT
  Age: 50 Year
  Sex: Male
  Weight: 88.4514 kg

DRUGS (2)
  1. CIPRO [Suspect]
     Indication: PROSTATE INFECTION
     Dosage: PO
     Route: 048
     Dates: end: 20081001
  2. LEVAQUIN [Suspect]
     Indication: PROSTATE INFECTION
     Dosage: PO
     Route: 048
     Dates: start: 20081001, end: 20081101

REACTIONS (4)
  - MUSCLE RUPTURE [None]
  - PAIN [None]
  - TENDON RUPTURE [None]
  - TENDONITIS [None]
